FAERS Safety Report 19634299 (Version 1)
Quarter: 2021Q3

REPORT INFORMATION
  Report Type: Spontaneous
  Country: US (occurrence: US)
  Receive Date: 20210729
  Receipt Date: 20210729
  Transmission Date: 20211014
  Serious: Yes (Hospitalization)
  Sender: FDA-Public Use
  Company Number: None

PATIENT
  Age: 15 Year
  Sex: Female

DRUGS (1)
  1. HUMIRA [Suspect]
     Active Substance: ADALIMUMAB
     Indication: COLITIS ULCERATIVE
     Dosage: 40MG/0.4ML EVERY OTHER WK SUB Q
     Route: 058
     Dates: start: 20210724

REACTIONS (7)
  - Abdominal distension [None]
  - Product distribution issue [None]
  - Muscle spasms [None]
  - Therapy interrupted [None]
  - Symptom recurrence [None]
  - Haematochezia [None]
  - Malaise [None]

NARRATIVE: CASE EVENT DATE: 20210728
